FAERS Safety Report 16984947 (Version 1)
Quarter: 2019Q4

REPORT INFORMATION
  Report Type: Other
  Country: IN (occurrence: IN)
  Receive Date: 20191101
  Receipt Date: 20191101
  Transmission Date: 20200122
  Serious: Yes (Other)
  Sender: FDA-Public Use
  Company Number: IN-MSN LABORATORIES PRIVATE LIMITED-2076344

PATIENT
  Age: 68 Year
  Sex: Male

DRUGS (7)
  1. H2 RECEPTOR BLOCKER [Concomitant]
     Route: 065
     Dates: start: 201708
  2. CALCIUM ACETATE. [Concomitant]
     Active Substance: CALCIUM ACETATE
     Route: 065
  3. ZOLEDRONIC ACID [Concomitant]
     Active Substance: ZOLEDRONIC ACID
     Route: 065
  4. PREDNISOLONE. [Suspect]
     Active Substance: PREDNISOLONE
     Route: 065
     Dates: start: 201708
  5. FOLIC ACID. [Concomitant]
     Active Substance: FOLIC ACID
     Route: 065
     Dates: start: 201708
  6. LOSARTAN. [Concomitant]
     Active Substance: LOSARTAN
     Route: 065
  7. ABIRATERONE ACETATE. [Suspect]
     Active Substance: ABIRATERONE ACETATE
     Indication: PROSTATE CANCER METASTATIC
     Route: 065
     Dates: start: 201708

REACTIONS (2)
  - Hypokalaemia [Recovering/Resolving]
  - Quadriplegia [Recovering/Resolving]
